FAERS Safety Report 5777480-2 (Version None)
Quarter: 2008Q2

REPORT INFORMATION
  Report Type: 
  Country: None (occurrence: None)
  Receive Date: 20080618
  Receipt Date: 20080609
  Transmission Date: 20081010
  Serious: Yes (Other)
  Sender: FDA-Public Use
  Company Number: US-BAYER-200825389NA

PATIENT
  Age: 70 Year
  Sex: Female

DRUGS (8)
  1. MAGNEVIST [Suspect]
     Indication: NUCLEAR MAGNETIC RESONANCE IMAGING
     Dates: start: 20031023, end: 20031023
  2. MAGNEVIST [Suspect]
     Dates: start: 20031105, end: 20031105
  3. MAGNEVIST [Suspect]
     Dates: start: 20040203, end: 20040203
  4. MAGNEVIST [Suspect]
     Dates: start: 20060418, end: 20060418
  5. OMNISCAN [Suspect]
     Indication: NUCLEAR MAGNETIC RESONANCE IMAGING
  6. OPTIMARK [Suspect]
     Indication: NUCLEAR MAGNETIC RESONANCE IMAGING
  7. MULTIHANCE [Suspect]
     Indication: NUCLEAR MAGNETIC RESONANCE IMAGING
  8. PROHANCE [Suspect]
     Indication: NUCLEAR MAGNETIC RESONANCE IMAGING

REACTIONS (10)
  - HEADACHE [None]
  - HYPERTENSION [None]
  - INJURY [None]
  - MOBILITY DECREASED [None]
  - MOVEMENT DISORDER [None]
  - MUSCULAR WEAKNESS [None]
  - NEPHROGENIC SYSTEMIC FIBROSIS [None]
  - PEAU D'ORANGE [None]
  - SKIN HYPERTROPHY [None]
  - SKIN TIGHTNESS [None]
